FAERS Safety Report 10208445 (Version 2)
Quarter: 2014Q2

REPORT INFORMATION
  Report Type: Report from Study
  Country: US (occurrence: US)
  Receive Date: 20140530
  Receipt Date: 20140606
  Transmission Date: 20141212
  Serious: Yes (Death, Hospitalization)
  Sender: FDA-Public Use
  Company Number: US-GLAXOSMITHKLINE-A1074465A

PATIENT
  Age: 78 Year
  Sex: Male
  Weight: 76.7 kg

DRUGS (2)
  1. TRAMETINIB [Suspect]
     Indication: ACUTE MYELOID LEUKAEMIA
     Dosage: 2MG PER DAY
     Route: 048
     Dates: start: 20140415, end: 20140511
  2. GSK2141795 [Suspect]
     Indication: ACUTE MYELOID LEUKAEMIA
     Dosage: 25MG PER DAY
     Route: 048
     Dates: start: 20140415, end: 20140511

REACTIONS (2)
  - Lung infection [Not Recovered/Not Resolved]
  - Respiratory failure [Fatal]
